FAERS Safety Report 24097395 (Version 3)
Quarter: 2024Q3

REPORT INFORMATION
  Report Type: Spontaneous
  Country: IT (occurrence: IT)
  Receive Date: 20240716
  Receipt Date: 20240725
  Transmission Date: 20241016
  Serious: Yes (Hospitalization, Other)
  Sender: PFIZER
  Company Number: IT-MLMSERVICE-20240708-PI126636-00306-1

PATIENT
  Age: 28 Year
  Sex: Female

DRUGS (10)
  1. METHYLPREDNISOLONE SODIUM SUCCINATE [Suspect]
     Active Substance: METHYLPREDNISOLONE SODIUM SUCCINATE
     Indication: Immunosuppressant drug therapy
     Dosage: BOLUSES
     Route: 042
     Dates: start: 201712
  2. METHYLPREDNISOLONE SODIUM SUCCINATE [Suspect]
     Active Substance: METHYLPREDNISOLONE SODIUM SUCCINATE
     Dosage: BOLUSES INDUCTION CYCLE
     Route: 042
     Dates: start: 202007
  3. PREDNISONE [Suspect]
     Active Substance: PREDNISONE
     Indication: Immunosuppressant drug therapy
     Dosage: INDUCTION CYCLE
     Dates: start: 2019
  4. TACROLIMUS [Suspect]
     Active Substance: TACROLIMUS
     Indication: Immunosuppressant drug therapy
     Dosage: INDUCTION CYCLE
     Dates: start: 2013, end: 2017
  5. TACROLIMUS [Suspect]
     Active Substance: TACROLIMUS
     Dosage: NEW INDUCTION CYCLE
     Dates: start: 2019
  6. TACROLIMUS [Suspect]
     Active Substance: TACROLIMUS
     Dosage: ENHANCED THERAPY
     Dates: start: 202007, end: 202011
  7. HYDROXYCHLOROQUINE [Suspect]
     Active Substance: HYDROXYCHLOROQUINE
     Indication: Immunosuppressant drug therapy
     Dosage: UNK
     Route: 042
  8. MYCOPHENOLATE MOFETIL [Suspect]
     Active Substance: MYCOPHENOLATE MOFETIL
     Indication: Immunosuppressant drug therapy
     Dosage: UNK
     Dates: start: 2013, end: 2017
  9. MYCOPHENOLATE MOFETIL [Suspect]
     Active Substance: MYCOPHENOLATE MOFETIL
     Dosage: NEW INDUCTION CYCLE
     Dates: start: 2019
  10. MYCOPHENOLATE MOFETIL [Suspect]
     Active Substance: MYCOPHENOLATE MOFETIL
     Dosage: ENHANCED THERAPY
     Dates: start: 202007, end: 202011

REACTIONS (2)
  - Nephritis [Recovered/Resolved]
  - COVID-19 pneumonia [Recovered/Resolved]

NARRATIVE: CASE EVENT DATE: 20201029
